FAERS Safety Report 6712546-1 (Version None)
Quarter: 2010Q2

REPORT INFORMATION
  Report Type: 
  Country: None (occurrence: None)
  Receive Date: 20100506
  Receipt Date: 20100423
  Transmission Date: 20101027
  Serious: Yes (Other)
  Sender: FDA-Public Use
  Company Number: US-BAYER-201020346NA

PATIENT
  Age: 34 Year
  Sex: Female

DRUGS (2)
  1. YASMIN [Suspect]
     Indication: DRUG USE FOR UNKNOWN INDICATION
     Route: 048
     Dates: start: 20080520, end: 20080728
  2. OCELLA [Suspect]
     Indication: DRUG USE FOR UNKNOWN INDICATION
     Route: 048
     Dates: start: 20080729, end: 20090113

REACTIONS (2)
  - ARRHYTHMIA [None]
  - CHOLECYSTECTOMY [None]
